FAERS Safety Report 21323152 (Version 1)
Quarter: 2022Q3

REPORT INFORMATION
  Report Type: Report from Study
  Country: IL (occurrence: IL)
  Receive Date: 20220912
  Receipt Date: 20220912
  Transmission Date: 20221027
  Serious: Yes (Death)
  Sender: FDA-Public Use
  Company Number: IL-NOVARTISPH-NVSC2022IL205370

PATIENT
  Age: 75 Year
  Sex: Female

DRUGS (1)
  1. PIQRAY [Suspect]
     Active Substance: ALPELISIB
     Indication: Breast cancer
     Dosage: 300 MG, QD
     Route: 048
     Dates: start: 20220727, end: 20220801

REACTIONS (1)
  - Death [Fatal]

NARRATIVE: CASE EVENT DATE: 20220831
